FAERS Safety Report 18261946 (Version 1)
Quarter: 2020Q3

REPORT INFORMATION
  Report Type: Spontaneous
  Country: CZ (occurrence: CZ)
  Receive Date: 20200914
  Receipt Date: 20200914
  Transmission Date: 20201103
  Serious: Yes (Other)
  Sender: FDA-Public Use
  Company Number: CZ-ASTRAZENECA-2020SF14916

PATIENT
  Age: 48 Year
  Sex: Female

DRUGS (1)
  1. OMEPRAZOLE. [Suspect]
     Active Substance: OMEPRAZOLE
     Indication: PRODUCT USED FOR UNKNOWN INDICATION
     Route: 065

REACTIONS (9)
  - Nail disorder [Unknown]
  - Nausea [Unknown]
  - Skin plaque [Unknown]
  - Peripheral swelling [Unknown]
  - Drug intolerance [Unknown]
  - Vertigo [Unknown]
  - Ovarian cyst [Unknown]
  - Nail discolouration [Unknown]
  - Erythema [Unknown]
